FAERS Safety Report 4565284-8 (Version None)
Quarter: 2005Q1

REPORT INFORMATION
  Report Type: 
  Country: None (occurrence: None)
  Receive Date: 20050131
  Receipt Date: 20050119
  Transmission Date: 20050727
  Serious: Yes (Hospitalization)
  Sender: FDA-Public Use
  Company Number: IT-MERCK-0501ITA00023

PATIENT
  Age: 64 Year
  Sex: Male

DRUGS (4)
  1. SINGULAIR [Suspect]
     Indication: ASTHMA
     Route: 048
     Dates: start: 20020301, end: 20020501
  2. BETAMETHASONE [Suspect]
     Indication: ASTHMA
     Route: 065
     Dates: end: 20020401
  3. CORTICOSTEROIDS (UNSPECIFIED) [Suspect]
     Indication: ASTHMA
     Route: 065
     Dates: end: 20020401
  4. [COMPOSITION UNSPECIFIED] [Concomitant]
     Indication: ASTHMA
     Route: 065

REACTIONS (1)
  - ALLERGIC GRANULOMATOUS ANGIITIS [None]
